FAERS Safety Report 10380011 (Version 1)
Quarter: 2014Q3

REPORT INFORMATION
  Report Type: Other
  Country: DE (occurrence: DE)
  Receive Date: 20140813
  Receipt Date: 20140813
  Transmission Date: 20150326
  Serious: No
  Sender: FDA-Public Use
  Company Number: DE-LUPIN PHARMACEUTICALS INC.-E2B_00002231

PATIENT
  Sex: Female
  Weight: 50 kg

DRUGS (2)
  1. LYRICA [Suspect]
     Active Substance: PREGABALIN
     Indication: ANXIETY DISORDER
     Route: 048
     Dates: start: 20140321, end: 20140523
  2. SERTRALINE [Suspect]
     Active Substance: SERTRALINE HYDROCHLORIDE
     Indication: ANXIETY DISORDER
     Route: 048
     Dates: start: 20140227

REACTIONS (2)
  - Arthralgia [Recovered/Resolved]
  - Joint swelling [Recovered/Resolved]
